APPROVED DRUG PRODUCT: AMPICILLIN SODIUM
Active Ingredient: AMPICILLIN SODIUM
Strength: EQ 1GM BASE/VIAL
Dosage Form/Route: INJECTABLE;INJECTION
Application: A090884 | Product #002
Applicant: ACS DOBFAR SPA
Approved: Apr 3, 2013 | RLD: No | RS: No | Type: DISCN